FAERS Safety Report 24215264 (Version 1)
Quarter: 2024Q3

REPORT INFORMATION
  Report Type: Spontaneous
  Country: GR (occurrence: GR)
  Receive Date: 20240816
  Receipt Date: 20240816
  Transmission Date: 20241017
  Serious: Yes (Death, Hospitalization)
  Sender: AZURITY PHARMACEUTICALS
  Company Number: GR-AZURITY PHARMACEUTICALS, INC.-AZR202408-000259

PATIENT
  Sex: Male

DRUGS (4)
  1. METHOTREXATE [Suspect]
     Active Substance: METHOTREXATE
     Indication: Product used for unknown indication
     Dosage: UNK
     Route: 065
  2. METHYLPREDNISOLONE ACETATE [Suspect]
     Active Substance: METHYLPREDNISOLONE ACETATE
     Indication: Product used for unknown indication
     Dosage: UNK
     Route: 065
  3. AZATHIOPRINE [Suspect]
     Active Substance: AZATHIOPRINE
     Indication: Product used for unknown indication
  4. INFLIXIMAB [Suspect]
     Active Substance: INFLIXIMAB
     Indication: Product used for unknown indication
     Dosage: UNK
     Route: 065

REACTIONS (7)
  - Histoplasmosis disseminated [Fatal]
  - Thalamic infarction [Unknown]
  - Cerebral infarction [Unknown]
  - Large intestine polyp [Unknown]
  - Leukoencephalopathy [Unknown]
  - Ileal ulcer [Unknown]
  - Large intestinal ulcer [Unknown]
